FAERS Safety Report 10583352 (Version 1)
Quarter: 2014Q4

REPORT INFORMATION
  Report Type: Spontaneous
  Country: AU (occurrence: None)
  Receive Date: 20141112
  Receipt Date: 20141112
  Transmission Date: 20150529
  Serious: Yes (Death)
  Sender: FDA-Public Use
  Company Number: AU2014GSK015242

PATIENT
  Age: 68 Year
  Sex: Male

DRUGS (4)
  1. DULOXETINE (DULOXETINE) UNKNOWN [Suspect]
     Active Substance: DULOXETINE
     Indication: COMPLETED SUICIDE
  2. ZOLPIDEM (ZOLPIDEM) [Suspect]
     Active Substance: ZOLPIDEM TARTRATE
     Indication: COMPLETED SUICIDE
  3. PAROXETINE [Suspect]
     Active Substance: PAROXETINE\PAROXETINE HYDROCHLORIDE
     Indication: COMPLETED SUICIDE
  4. MIRTAZAPINE (MIRTAZAPINE) [Suspect]
     Active Substance: MIRTAZAPINE
     Indication: COMPLETED SUICIDE

REACTIONS (6)
  - Angiopathy [None]
  - Arteriosclerosis coronary artery [None]
  - Completed suicide [None]
  - Toxicity to various agents [None]
  - Exposure via ingestion [None]
  - Vascular calcification [None]
